FAERS Safety Report 24752827 (Version 1)
Quarter: 2024Q4

REPORT INFORMATION
  Report Type: Spontaneous
  Country: US (occurrence: None)
  Receive Date: 20241218
  Receipt Date: 20241218
  Transmission Date: 20250114
  Serious: No
  Sender: Public
  Company Number: None

PATIENT
  Age: 39 Year
  Sex: Male
  Weight: 91.63 kg

DRUGS (1)
  1. MUPIROCIN [Suspect]
     Active Substance: MUPIROCIN
     Indication: Skin ulcer
     Dosage: OTHER QUANTITY : APPLY TO AFFECTED AREA(S) ;?FREQUENCY : TWICE A DAY;?APPLY TO AFFECTED AREA(S) TOPI
     Route: 061
     Dates: start: 202408

REACTIONS (1)
  - Death [None]
